FAERS Safety Report 8432593-1 (Version None)
Quarter: 2012Q2

REPORT INFORMATION
  Report Type: 
  Country: None (occurrence: None)
  Receive Date: 20120607
  Receipt Date: 20120525
  Transmission Date: 20120825
  Serious: Yes (Hospitalization, Other)
  Sender: FDA-Public Use
  Company Number: 12-429

PATIENT
  Age: 13 Month
  Sex: Female
  Weight: 12 kg

DRUGS (1)
  1. IBUPROFEN/DIPHENHYDRAMINE HYDROCHLORIDE [Suspect]
     Indication: ACCIDENTAL EXPOSURE
     Dosage: 50MG-KG/1X/ORAL
     Route: 048

REACTIONS (10)
  - ELECTROCARDIOGRAM QT PROLONGED [None]
  - LETHARGY [None]
  - GRAND MAL CONVULSION [None]
  - MENTAL STATUS CHANGES [None]
  - AGITATION [None]
  - SINUS TACHYCARDIA [None]
  - TOXICITY TO VARIOUS AGENTS [None]
  - FLUSHING [None]
  - DRY SKIN [None]
  - NYSTAGMUS [None]
